FAERS Safety Report 9190747 (Version 1)
Quarter: 2013Q1

REPORT INFORMATION
  Report Type: Spontaneous
  Country: GB (occurrence: None)
  Receive Date: 20130322
  Receipt Date: 20130322
  Transmission Date: 20140127
  Serious: Yes (Other)
  Sender: FDA-Public Use
  Company Number: GB-DEXPHARM-20130096

PATIENT
  Age: 84 Year
  Sex: Female

DRUGS (15)
  1. OMEPRAZOLE [Suspect]
     Dates: start: 20121029
  2. ACICLOVIR [Concomitant]
  3. AMITRIPTYLINE  HYDROCHLORIDE [Concomitant]
  4. AMLODIPINE [Concomitant]
  5. BRINZOLAMIDE [Concomitant]
  6. CIPROFLOXACIN [Concomitant]
  7. CO-CODAMOL [Concomitant]
  8. DOCUSATE  SODIUM [Concomitant]
  9. LACTULOSE [Concomitant]
  10. MACROGOL [Concomitant]
  11. PARACETAMOL [Concomitant]
  12. SERTRALINE [Concomitant]
  13. SOLIFENACIN  SUCCINATE [Concomitant]
  14. TIMOLOL [Concomitant]
  15. TRAMADOL [Concomitant]

REACTIONS (1)
  - Hyponatraemia [None]
